FAERS Safety Report 4644915-8 (Version None)
Quarter: 2005Q2

REPORT INFORMATION
  Report Type: 
  Country: None (occurrence: None)
  Receive Date: 20050422
  Receipt Date: 20050411
  Transmission Date: 20051028
  Serious: Yes (Hospitalization)
  Sender: FDA-Public Use
  Company Number: 2005059383

PATIENT
  Age: 84 Year
  Sex: Female

DRUGS (7)
  1. DALTEPARIN (DALTEPARIN) [Suspect]
     Indication: DEEP VEIN THROMBOSIS
     Dosage: 300 MG (75 MG, 4 IN 1 D)
     Dates: start: 20050130, end: 20050205
  2. CLOPIDOGREL BISULFATE [Suspect]
     Indication: ATRIAL FIBRILLATION
     Dosage: 300 MG (75 MG, 4 IN 1 D), ORAL
     Route: 048
     Dates: end: 20050101
  3. CLOPIDOGREL BISULFATE [Suspect]
     Indication: MYOCARDIAL ISCHAEMIA
     Dosage: 300 MG (75 MG, 4 IN 1 D), ORAL
     Route: 048
     Dates: end: 20050101
  4. LANSOPRAZOLE [Concomitant]
  5. VERAPAMIL [Concomitant]
  6. FRUOSEMIDE (FUROSEMIDE) [Concomitant]
  7. RISEDRONATE SODIUM (RISEDRONATE SODIUM) [Concomitant]

REACTIONS (2)
  - ASTHENIA [None]
  - EXTRADURAL HAEMATOMA [None]
